FAERS Safety Report 24203178 (Version 4)
Quarter: 2024Q3

REPORT INFORMATION
  Report Type: Spontaneous
  Country: US (occurrence: US)
  Receive Date: 20240813
  Receipt Date: 20240830
  Transmission Date: 20241017
  Serious: Yes (Other)
  Sender: ROCHE
  Company Number: US-ROCHE-10000048380

PATIENT
  Age: 8 Year
  Sex: Male
  Weight: 38.1 kg

DRUGS (6)
  1. XOLAIR [Suspect]
     Active Substance: OMALIZUMAB
     Indication: Asthma
     Dosage: 300 MG, Q2W (375MG TOTAL (TWO SYRINGES) ONE HAD 300 AND THE OTHER HAD 75DOSAGE FORM PEN)
     Route: 050
     Dates: start: 20240730, end: 20240730
  2. XOLAIR [Suspect]
     Active Substance: OMALIZUMAB
     Indication: Food allergy
     Dosage: 75 MG, Q2W (375MG TOTAL (TWO SYRINGES) ONE HAD 300 AND THE OTHER HAD 75DOSAGE FORM PEN)
     Route: 050
     Dates: start: 20240730, end: 20240730
  3. XOLAIR [Suspect]
     Active Substance: OMALIZUMAB
     Dosage: 75 MG, Q2W (375MG TOTAL (TWO SYRINGES) ONE HAD 300 AND THE OTHER HAD 75DOSAGE FORM PEN)
     Route: 050
     Dates: start: 20240730, end: 20240730
  4. SYMBICORT [Concomitant]
     Active Substance: BUDESONIDE\FORMOTEROL FUMARATE DIHYDRATE
     Indication: Product used for unknown indication
     Dosage: UNK (0.25 DAYS) (TWO PUFFS BY MOUTH TWICE A DAY), INHALATION USE
  5. CETIRIZINE [Concomitant]
     Active Substance: CETIRIZINE HYDROCHLORIDE
     Indication: Product used for unknown indication
     Dosage: 10 MG, QD
     Route: 050
  6. FLONASE [Concomitant]
     Active Substance: FLUTICASONE PROPIONATE
     Indication: Product used for unknown indication
     Dosage: 50 UG (ONE SPRAY IN BOTH NOSTRILS)
     Route: 050

REACTIONS (1)
  - Anaphylactic reaction [Recovered/Resolved]

NARRATIVE: CASE EVENT DATE: 20240730
